FAERS Safety Report 7380003-8 (Version None)
Quarter: 2011Q1

REPORT INFORMATION
  Report Type: 
  Country: None (occurrence: None)
  Receive Date: 20110318
  Receipt Date: 20110302
  Transmission Date: 20110831
  Serious: Yes (Other)
  Sender: FDA-Public Use
  Company Number: DSA_44799_2011

PATIENT
  Age: 70 Year
  Sex: Female

DRUGS (3)
  1. DILTIAZEM HYDROCHLORIDE [Suspect]
     Indication: CARDIAC DISORDER
     Dosage: (60 MG BID ORAL)
     Route: 048
     Dates: start: 20030101, end: 20100101
  2. ATACAND [Suspect]
     Indication: HYPERTENSION
     Dosage: (80MG, UNKNOWN)
  3. DIL-SANORANIA-DILTIAZEM HYDROCHLORIDE 60 MG [Suspect]
     Indication: CARDIAC DISORDER
     Dosage: (60 MG BID ORAL)
     Route: 048
     Dates: start: 20030101, end: 20100101

REACTIONS (3)
  - REFLUX OESOPHAGITIS [None]
  - HAEMOPTYSIS [None]
  - GASTRITIS EROSIVE [None]
